FAERS Safety Report 5289128-4 (Version None)
Quarter: 2007Q1

REPORT INFORMATION
  Report Type: 
  Country: None (occurrence: None)
  Receive Date: 20070124
  Receipt Date: 20061101
  Transmission Date: 20070707
  Serious: Yes (Other)
  Sender: FDA-Public Use
  Company Number: US200611000606

PATIENT
  Sex: Female

DRUGS (2)
  1. FORTEO [Suspect]
     Indication: OSTEOPOROSIS
     Dates: start: 20060301
  2. FORTEO [Concomitant]

REACTIONS (10)
  - DIZZINESS [None]
  - HEADACHE [None]
  - MALAISE [None]
  - NAUSEA [None]
  - PHARYNGEAL ERYTHEMA [None]
  - PHARYNGOLARYNGEAL PAIN [None]
  - SINUSITIS [None]
  - SYNCOPE [None]
  - TINNITUS [None]
  - VIRAL INFECTION [None]
